FAERS Safety Report 21159514 (Version 1)
Quarter: 2022Q3

REPORT INFORMATION
  Report Type: Spontaneous
  Country: CN (occurrence: CN)
  Receive Date: 20220802
  Receipt Date: 20220802
  Transmission Date: 20221027
  Serious: Yes (Hospitalization, Other)
  Sender: FDA-Public Use
  Company Number: None

PATIENT
  Age: 43 Year
  Sex: Male
  Weight: 68 kg

DRUGS (6)
  1. CYCLOPHOSPHAMIDE [Suspect]
     Active Substance: CYCLOPHOSPHAMIDE
     Indication: Thymoma
     Dosage: DOSAGE FORM- INJECTION, 840 MG, QD (CYCLOPHOSPHAMIDE 840 MG DILUTED WITH 0.9% SODIUM CHLORIDE 100 ML
     Route: 041
     Dates: start: 20220607, end: 20220607
  2. SODIUM CHLORIDE [Suspect]
     Active Substance: SODIUM CHLORIDE
     Indication: Medication dilution
     Dosage: DOSAGE FORM- INJECTION, 100 ML, QD (CYCLOPHOSPHAMIDE 840 MG DILUTED WITH 0.9% SODIUM CHLORIDE 100 ML
     Route: 041
     Dates: start: 20220607, end: 20220607
  3. SODIUM CHLORIDE [Suspect]
     Active Substance: SODIUM CHLORIDE
     Dosage: DOSAGE FORM- INJECTION, 500 ML, QD (CISPLATIN (FREEZE-DRIED TYPE) 40 MG DILUTED WITH 0.9% SODIUM CHL
     Route: 041
     Dates: start: 20220607, end: 20220608
  4. DEXTROSE MONOHYDRATE [Suspect]
     Active Substance: DEXTROSE MONOHYDRATE
     Indication: Medication dilution
     Dosage: 500 ML, QD (PIRARUBICIN HYDROCHLORIDE 80 MG DILUTED WITH GLUCOSE 500 ML, ONCE)
     Route: 041
     Dates: start: 20220607, end: 20220607
  5. PIRARUBICIN HYDROCHLORIDE [Suspect]
     Active Substance: PIRARUBICIN HYDROCHLORIDE
     Indication: Thymoma
     Dosage: 80 MG, QD (PIRARUBICIN HYDROCHLORIDE 80 MG DILUTED WITH GLUCOSE 500 ML, ONCE)
     Route: 041
     Dates: start: 20220607, end: 20220607
  6. CISPLATIN [Suspect]
     Active Substance: CISPLATIN
     Indication: Thymoma
     Dosage: DOSAGE FORM- LYOPHILIZED DRUG PRODUCT, 40 MG, QD (CISPLATIN (FREEZE-DRIED TYPE) 40 MG DILUTED WITH 0
     Route: 041
     Dates: start: 20220607, end: 20220608

REACTIONS (1)
  - Granulocytopenia [Recovering/Resolving]

NARRATIVE: CASE EVENT DATE: 20220628
